FAERS Safety Report 5373330-7 (Version None)
Quarter: 2007Q2

REPORT INFORMATION
  Report Type: 
  Country: None (occurrence: None)
  Receive Date: 20070628
  Receipt Date: 20070625
  Transmission Date: 20071010
  Serious: Yes (Hospitalization)
  Sender: FDA-Public Use
  Company Number: US-BRISTOL-MYERS SQUIBB COMPANY-13825542

PATIENT
  Age: 78 Year
  Sex: Male
  Weight: 86 kg

DRUGS (2)
  1. GLUCOVANCE [Suspect]
     Indication: DIABETES MELLITUS
     Dosage: 1.25/250 MG TABLETS
  2. AVALIDE [Suspect]
     Dosage: 300/12.5 MG TABLETS

REACTIONS (2)
  - LOWER LIMB FRACTURE [None]
  - MYOCARDIAL INFARCTION [None]
